FAERS Safety Report 8234780-4 (Version None)
Quarter: 2012Q1

REPORT INFORMATION
  Report Type: 
  Country: None (occurrence: None)
  Receive Date: 20120326
  Receipt Date: 20120313
  Transmission Date: 20120608
  Serious: Yes (Hospitalization)
  Sender: FDA-Public Use
  Company Number: PL-SANOFI-AVENTIS-2012SA015638

PATIENT
  Age: 50 Year
  Sex: Female
  Weight: 70 kg

DRUGS (12)
  1. BLINDED THERAPY [Suspect]
  2. BLINDED THERAPY [Suspect]
  3. DOCETAXEL [Suspect]
     Indication: BREAST CANCER
     Route: 042
     Dates: start: 20110901, end: 20110901
  4. DOCETAXEL [Suspect]
     Route: 042
     Dates: start: 20111001, end: 20111001
  5. DOCETAXEL [Suspect]
     Route: 042
     Dates: start: 20111216, end: 20111216
  6. DOCETAXEL [Suspect]
     Route: 042
     Dates: start: 20111001, end: 20111001
  7. BLINDED THERAPY [Suspect]
     Dates: start: 20111216
  8. DOCETAXEL [Suspect]
     Route: 042
     Dates: start: 20110901, end: 20110901
  9. BLINDED THERAPY [Suspect]
     Indication: BREAST CANCER
     Dates: start: 20110901
  10. BLINDED THERAPY [Suspect]
  11. DOCETAXEL [Suspect]
     Route: 042
     Dates: start: 20111101, end: 20111101
  12. BLINDED THERAPY [Suspect]

REACTIONS (1)
  - PNEUMOTHORAX [None]
